FAERS Safety Report 4974373-5 (Version None)
Quarter: 2006Q2

REPORT INFORMATION
  Report Type: 
  Country: None (occurrence: None)
  Receive Date: 20060417
  Receipt Date: 20060324
  Transmission Date: 20061013
  Serious: Yes (Hospitalization)
  Sender: FDA-Public Use
  Company Number: JP-AVENTIS-200610988JP

PATIENT
  Age: 0 Month
  Sex: Male
  Weight: 3.65 kg

DRUGS (2)
  1. LANTUS [Suspect]
     Route: 065
     Dates: start: 20040119
  2. NOVORAPID [Concomitant]
     Dates: start: 20040119

REACTIONS (3)
  - DRUG EXPOSURE DURING PREGNANCY [None]
  - HYPOGLYCAEMIA NEONATAL [None]
  - LARGE FOR DATES BABY [None]
